FAERS Safety Report 16509643 (Version 1)
Quarter: 2019Q3

REPORT INFORMATION
  Report Type: Spontaneous
  Country: US (occurrence: US)
  Receive Date: 20190701
  Receipt Date: 20190701
  Transmission Date: 20191004
  Serious: No
  Sender: FDA-Public Use
  Company Number: US-TEVA-2019-US-1067781

PATIENT
  Sex: Female
  Weight: 79 kg

DRUGS (1)
  1. TEVA ARMODAFINIL [Suspect]
     Active Substance: ARMODAFINIL
     Indication: NARCOLEPSY
     Dosage: HALF A PILL

REACTIONS (4)
  - Diarrhoea [Not Recovered/Not Resolved]
  - Wrong technique in product usage process [Unknown]
  - Gastric disorder [Not Recovered/Not Resolved]
  - Product substitution issue [Unknown]
